FAERS Safety Report 17314057 (Version 1)
Quarter: 2020Q1

REPORT INFORMATION
  Report Type: Spontaneous
  Country: US (occurrence: US)
  Receive Date: 20200123
  Receipt Date: 20200123
  Transmission Date: 20200409
  Serious: Yes (Hospitalization)
  Sender: FDA-Public Use
  Company Number: None

PATIENT
  Age: 83 Year
  Sex: Male
  Weight: 72.57 kg

DRUGS (10)
  1. CARVEDILOL 6.25MG [Concomitant]
     Active Substance: CARVEDILOL
  2. FLUTICASONE PROPIONATE 50MCG [Concomitant]
     Active Substance: FLUTICASONE PROPIONATE
  3. ISOSORBIDE MONONITRATE ER 60MG [Concomitant]
  4. OMEPRAZOLE 20MG [Concomitant]
     Active Substance: OMEPRAZOLE
  5. ALBUTEROL SULFATE. [Concomitant]
     Active Substance: ALBUTEROL SULFATE
  6. ATORVASTATIN 20MG [Concomitant]
     Active Substance: ATORVASTATIN
  7. CAPECITABINE. [Suspect]
     Active Substance: CAPECITABINE
     Indication: GASTRIC CANCER
     Route: 048
     Dates: start: 20191114, end: 20200123
  8. PANTOPRAZOLE 40MG [Concomitant]
     Active Substance: PANTOPRAZOLE SODIUM
  9. PROCHLORPERAZINE 10MG [Concomitant]
  10. ONDANSETRON 8MG [Concomitant]
     Active Substance: ONDANSETRON

REACTIONS (1)
  - Cerebral haemorrhage [None]

NARRATIVE: CASE EVENT DATE: 20200117
